FAERS Safety Report 15937654 (Version 2)
Quarter: 2019Q1

REPORT INFORMATION
  Report Type: Spontaneous
  Country: NL (occurrence: NL)
  Receive Date: 20190208
  Receipt Date: 20190215
  Transmission Date: 20190417
  Serious: Yes (Other)
  Sender: FDA-Public Use
  Company Number: NL-TEVA-2019-NL-1008989

PATIENT
  Age: 63 Year
  Sex: Female
  Weight: 104 kg

DRUGS (10)
  1. HYDROKININE 100 MG [Concomitant]
     Dosage: 1 DOSAGE FORMS DAILY; 1DD
  2. LACTULOSESTROOP [Concomitant]
     Dosage: 1 DOSAGE FORMS DAILY; 1DD
  3. METRONIDAZOL TABLET, 500 MG (MILLIGRAM) [Suspect]
     Active Substance: METRONIDAZOLE
     Indication: HELICOBACTER INFECTION
     Dosage: 2DD 1 PCS
     Dates: start: 20190118, end: 20190122
  4. AMOXICILLINE 500 MG [Concomitant]
     Active Substance: AMOXICILLIN
     Dosage: 2DD2
  5. FEXOFENADINE 180 MG [Concomitant]
     Active Substance: FEXOFENADINE\FEXOFENADINE HYDROCHLORIDE
     Dosage: 1 DOSAGE FORMS DAILY; 1DD
  6. FOSTER 100/6 MCGR [Concomitant]
     Dosage: 2DD2
  7. PANTOPRAZOLE SODIUM. [Concomitant]
     Active Substance: PANTOPRAZOLE SODIUM
     Dosage: 2DD
  8. NITROFURANTO?NE 50 MG [Concomitant]
     Dosage: 50 MILLIGRAM DAILY; 1DD1
  9. SALBUTAMOL 100 MCGRAM [Concomitant]
     Dosage: 4DD1 ZN
  10. DAKTACORT ZALF [Concomitant]
     Dosage: 1 DOSAGE FORMS DAILY; 1DD

REACTIONS (1)
  - Angioedema [Recovered/Resolved]

NARRATIVE: CASE EVENT DATE: 20190121
